FAERS Safety Report 16700878 (Version 2)
Quarter: 2025Q2

REPORT INFORMATION
  Report Type: Report from Study
  Country: FR (occurrence: FR)
  Receive Date: 20190814
  Receipt Date: 20250624
  Transmission Date: 20250716
  Serious: Yes (Other)
  Sender: AUROBINDO
  Company Number: FR-AUROBINDO-AUR-APL-2019-053011

PATIENT
  Age: 48 Year
  Sex: Female

DRUGS (2)
  1. AMOXICILLIN\CLAVULANIC ACID [Suspect]
     Active Substance: AMOXICILLIN\CLAVULANIC ACID
     Indication: Product used for unknown indication
     Route: 065
  2. METRONIDAZOLE\SPIRAMYCIN [Suspect]
     Active Substance: METRONIDAZOLE\SPIRAMYCIN
     Indication: Product used for unknown indication
     Route: 065

REACTIONS (4)
  - Drug reaction with eosinophilia and systemic symptoms [Unknown]
  - Type I hypersensitivity [Unknown]
  - Anaphylactic reaction [Unknown]
  - Drug hypersensitivity [Unknown]
